FAERS Safety Report 6891709-9 (Version None)
Quarter: 2010Q3

REPORT INFORMATION
  Report Type: 
  Country: None (occurrence: None)
  Receive Date: 20100731
  Receipt Date: 20071004
  Transmission Date: 20110219
  Serious: No
  Sender: FDA-Public Use
  Company Number: US-PFIZER INC-2007082777

PATIENT
  Sex: Female
  Weight: 45.9 kg

DRUGS (12)
  1. NORVASC [Suspect]
     Indication: HYPERTENSION
  2. AMLODIPINE [Suspect]
     Indication: HYPERTENSION
     Dates: start: 20070101
  3. LIPITOR [Suspect]
     Indication: BLOOD CHOLESTEROL INCREASED
     Dates: start: 20060101
  4. FELODIPINE [Suspect]
     Indication: HYPERTENSION
     Dates: end: 20070101
  5. ZOCOR [Suspect]
     Indication: BLOOD CHOLESTEROL INCREASED
  6. CALCITONIN [Concomitant]
     Route: 045
  7. XALATAN [Concomitant]
  8. HYDROCHLOROTHIAZIDE [Concomitant]
     Indication: HYPERTENSION
  9. PREMARIN [Concomitant]
  10. VITAMINS [Concomitant]
  11. LOVAZA [Concomitant]
  12. VITAMIN E [Concomitant]

REACTIONS (4)
  - ALOPECIA [None]
  - BLOOD CHOLESTEROL INCREASED [None]
  - BLOOD PRESSURE INADEQUATELY CONTROLLED [None]
  - STRESS [None]
